FAERS Safety Report 11614615 (Version 4)
Quarter: 2016Q1

REPORT INFORMATION
  Report Type: Spontaneous
  Country: US (occurrence: US)
  Receive Date: 20151009
  Receipt Date: 20160122
  Transmission Date: 20160525
  Serious: Yes (Hospitalization, Other)
  Sender: FDA-Public Use
  Company Number: US-PFIZER INC-2015324305

PATIENT
  Age: 87 Year
  Sex: Female
  Weight: 102 kg

DRUGS (2)
  1. IBRANCE [Suspect]
     Active Substance: PALBOCICLIB
     Dosage: 125 MG, CYCLIC (DAY 1-21 Q28 DAYS)
     Route: 048
     Dates: start: 20150902, end: 201512
  2. IBRANCE [Suspect]
     Active Substance: PALBOCICLIB
     Indication: BREAST CANCER
     Dosage: 125 MG, CYCLIC(DAY 1-21 Q28 DAYS)
     Route: 048
     Dates: start: 20150902, end: 20150915

REACTIONS (10)
  - Pneumonia [Unknown]
  - Asthenia [Unknown]
  - Agitation [Unknown]
  - Confusional state [Unknown]
  - Gait disturbance [Unknown]
  - Pain [Unknown]
  - Cough [Unknown]
  - Swelling [Unknown]
  - Haemoptysis [Unknown]
  - Dementia [Unknown]

NARRATIVE: CASE EVENT DATE: 20151009
